FAERS Safety Report 20458967 (Version 1)
Quarter: 2022Q1

REPORT INFORMATION
  Report Type: Spontaneous
  Country: US (occurrence: US)
  Receive Date: 20220211
  Receipt Date: 20220211
  Transmission Date: 20220424
  Serious: Yes (Other)
  Sender: FDA-Public Use
  Company Number: US-LUPIN PHARMACEUTICALS INC.-2022-01808

PATIENT
  Age: 15 Year
  Sex: Male

DRUGS (9)
  1. ESCITALOPRAM [Suspect]
     Active Substance: ESCITALOPRAM OXALATE
     Indication: Tourette^s disorder
     Dosage: UNK
     Route: 065
     Dates: start: 20211011
  2. CLONIDINE [Suspect]
     Active Substance: CLONIDINE
     Indication: Tourette^s disorder
     Dosage: UNK
     Route: 065
  3. SERTRALINE [Suspect]
     Active Substance: SERTRALINE HYDROCHLORIDE
     Indication: Tourette^s disorder
     Dosage: UNK
     Route: 065
  4. ARIPIPRAZOLE [Suspect]
     Active Substance: ARIPIPRAZOLE
     Indication: Tourette^s disorder
     Dosage: UNK
     Route: 065
  5. BENZTROPINE [Suspect]
     Active Substance: BENZTROPINE
     Indication: Tourette^s disorder
     Dosage: UNK
     Route: 065
  6. RISPERIDONE [Suspect]
     Active Substance: RISPERIDONE
     Indication: Tourette^s disorder
     Dosage: UNK
     Route: 065
  7. CLONAZEPAM [Suspect]
     Active Substance: CLONAZEPAM
     Indication: Tourette^s disorder
     Dosage: UNK
     Route: 065
  8. GUANFACINE [Suspect]
     Active Substance: GUANFACINE
     Indication: Tourette^s disorder
     Dosage: UNK
     Route: 065
  9. HALOPERIDOL [Suspect]
     Active Substance: HALOPERIDOL
     Indication: Tourette^s disorder
     Dosage: UNK
     Route: 065

REACTIONS (2)
  - Drug ineffective for unapproved indication [Unknown]
  - Off label use [Unknown]
